FAERS Safety Report 8563911-1 (Version None)
Quarter: 2012Q3

REPORT INFORMATION
  Report Type: 
  Country: None (occurrence: None)
  Receive Date: 20120727
  Receipt Date: 20120727
  Transmission Date: 20120928
  Serious: Yes (Other)
  Sender: FDA-Public Use
  Company Number: None

PATIENT
  Age: 16 Year
  Sex: Female

DRUGS (1)
  1. YAZ [Suspect]
     Indication: MENORRHAGIA
     Dosage: ONCE DAILY PO
     Route: 048
     Dates: start: 20110101, end: 20120601

REACTIONS (2)
  - DYSPNOEA [None]
  - ANXIETY [None]
